FAERS Safety Report 5156617-2 (Version None)
Quarter: 2006Q4

REPORT INFORMATION
  Report Type: 
  Country: None (occurrence: None)
  Receive Date: 20061122
  Receipt Date: 20060721
  Transmission Date: 20070319
  Serious: Yes (Other)
  Sender: FDA-Public Use
  Company Number: GB-GILEAD-2006-0009906

PATIENT
  Sex: Male
  Weight: 98 kg

DRUGS (6)
  1. VIREAD [Suspect]
     Indication: HIV INFECTION
     Dates: start: 20000101, end: 20050601
  2. TRUVADA [Suspect]
     Dates: start: 20050601
  3. RITONAVIR [Concomitant]
     Route: 048
     Dates: start: 20000101
  4. BEZOLIP MONO [Concomitant]
     Route: 048
  5. ENTRILITAB INF [Concomitant]
     Route: 048
  6. ATAZANAVIR [Concomitant]
     Dates: start: 20040101

REACTIONS (7)
  - HYPERCALCAEMIA [None]
  - HYPERGLYCAEMIA [None]
  - HYPERPARATHYROIDISM TERTIARY [None]
  - HYPOPHOSPHATAEMIA [None]
  - MEDIASTINAL MASS [None]
  - OSTEOPENIA [None]
  - VITAMIN D DEFICIENCY [None]
